FAERS Safety Report 20503233 (Version 1)
Quarter: 2022Q1

REPORT INFORMATION
  Report Type: Spontaneous
  Country: US (occurrence: None)
  Receive Date: 20220222
  Receipt Date: 20220222
  Transmission Date: 20220423
  Serious: No
  Sender: FDA-Public Use
  Company Number: None

PATIENT
  Sex: Male

DRUGS (1)
  1. ENBREL [Suspect]
     Active Substance: ETANERCEPT
     Indication: Ankylosing spondylitis
     Dosage: 50MG EVERY 7 DAYS ?
     Route: 058
     Dates: start: 20220127

REACTIONS (3)
  - Constipation [None]
  - Depression [None]
  - Drug ineffective [None]
